FAERS Safety Report 8952329 (Version 2)
Quarter: 2012Q4

REPORT INFORMATION
  Report Type: 
  Country: US (occurrence: US)
  Receive Date: 20121205
  Receipt Date: 20121219
  Transmission Date: 20130627
  Serious: Yes (Hospitalization)
  Sender: FDA-Public Use
  Company Number: US-BIOGENIDEC-2012BI056058

PATIENT
  Sex: Female

DRUGS (3)
  1. AVONEX [Suspect]
     Indication: MULTIPLE SCLEROSIS
     Route: 030
     Dates: start: 19981126
  2. AVONEX [Suspect]
     Indication: MULTIPLE SCLEROSIS
     Route: 030
     Dates: start: 20121205
  3. REBIF [Concomitant]

REACTIONS (7)
  - Asthma [Recovered/Resolved]
  - Hypersensitivity [Recovered/Resolved]
  - Foreign body [Recovered/Resolved]
  - Multiple sclerosis [Unknown]
  - Bone disorder [Not Recovered/Not Resolved]
  - Liver disorder [Not Recovered/Not Resolved]
  - Influenza like illness [Recovered/Resolved]
